FAERS Safety Report 25283127 (Version 2)
Quarter: 2025Q2

REPORT INFORMATION
  Report Type: Spontaneous
  Country: PL (occurrence: PL)
  Receive Date: 20250508
  Receipt Date: 20250526
  Transmission Date: 20250717
  Serious: No
  Sender: SANOFI AVENTIS
  Company Number: None

PATIENT
  Age: 37 Year
  Sex: Female

DRUGS (10)
  1. HYDROCHLOROTHIAZIDE [Suspect]
     Active Substance: HYDROCHLOROTHIAZIDE
  2. ENOXAPARIN SODIUM [Suspect]
     Active Substance: ENOXAPARIN SODIUM
  3. ISOPTIN [Suspect]
     Active Substance: VERAPAMIL HYDROCHLORIDE
  4. METHYLDOPA [Suspect]
     Active Substance: METHYLDOPA
  5. CEFOTAXIME SODIUM [Suspect]
     Active Substance: CEFOTAXIME SODIUM
  6. ASPARAGINE [Suspect]
     Active Substance: ASPARAGINE
  7. NYSTATIN [Suspect]
     Active Substance: NYSTATIN
  8. POTASSIUM CHLORIDE [Suspect]
     Active Substance: POTASSIUM CHLORIDE
  9. HUMULIN N [Suspect]
     Active Substance: INSULIN HUMAN
     Indication: Gestational diabetes
     Dosage: 21 IU, QD (21 IU HUMULINN AND 39 IU HUMULINR) AT 60 IU/DAY)
  10. HUMULIN R [Suspect]
     Active Substance: INSULIN HUMAN
     Indication: Gestational diabetes
     Dosage: 39 IU, QD (21 IU HUMULINN AND 39 IU HUMULINR) AT 60 IU/DAY)

REACTIONS (1)
  - Exposure during pregnancy [Unknown]
